FAERS Safety Report 22064981 (Version 1)
Quarter: 2023Q1

REPORT INFORMATION
  Report Type: Spontaneous
  Country: US (occurrence: US)
  Receive Date: 20230306
  Receipt Date: 20230306
  Transmission Date: 20230418
  Serious: Yes (Other)
  Sender: FDA-Public Use
  Company Number: US-BRISTOL-MYERS SQUIBB COMPANY-2023-031470

PATIENT
  Age: 69 Year
  Sex: Female
  Weight: 72.57 kg

DRUGS (3)
  1. ELIQUIS [Suspect]
     Active Substance: APIXABAN
     Indication: Thrombosis prophylaxis
     Route: 048
     Dates: start: 202102
  2. ACYCLOVIR [Concomitant]
     Active Substance: ACYCLOVIR
     Indication: Product used for unknown indication
     Dosage: TAKING IT IN JULY OF LAST YEAR AT THE END OF MY CHEMO TREATMENT
     Dates: start: 202207
  3. ATORVASTATIN [Concomitant]
     Active Substance: ATORVASTATIN
     Indication: Product used for unknown indication

REACTIONS (3)
  - Neck mass [Unknown]
  - Neuropathy peripheral [Unknown]
  - Lymphoma [Recovered/Resolved]

NARRATIVE: CASE EVENT DATE: 20220201
